FAERS Safety Report 18556685 (Version 1)
Quarter: 2020Q4

REPORT INFORMATION
  Report Type: Spontaneous
  Country: US (occurrence: US)
  Receive Date: 20201128
  Receipt Date: 20201128
  Transmission Date: 20210114
  Serious: No
  Sender: FDA-Public Use
  Company Number: NVSC2020US317556

PATIENT
  Sex: Male

DRUGS (2)
  1. MEKINIST [Suspect]
     Active Substance: TRAMETINIB DIMETHYL SULFOXIDE
     Indication: ILLNESS
     Dosage: 2 MG, QD
     Route: 048
     Dates: start: 20191224, end: 202011
  2. TAFINLAR [Suspect]
     Active Substance: DABRAFENIB MESYLATE
     Indication: ILLNESS
     Dosage: 150 MG, Q12H
     Route: 048
     Dates: start: 20191224, end: 202011

REACTIONS (1)
  - Drug ineffective [Unknown]
